FAERS Safety Report 5474631-4 (Version None)
Quarter: 2007Q3

REPORT INFORMATION
  Report Type: 
  Country: None (occurrence: None)
  Receive Date: 20070831
  Receipt Date: 20070430
  Transmission Date: 20080115
  Serious: No
  Sender: FDA-Public Use
  Company Number: 240750

PATIENT
  Age: 78 Year
  Sex: Male

DRUGS (3)
  1. LUCENTIS [Suspect]
     Indication: DRUG USE FOR UNKNOWN INDICATION
     Dates: start: 20070426
  2. ANTIDEPRESSANT (ANTIDEPRESSANT) [Concomitant]
  3. LUTEIN (LUTEIN) [Concomitant]

REACTIONS (3)
  - EYE PAIN [None]
  - EYE SWELLING [None]
  - PHARYNGOLARYNGEAL PAIN [None]
